FAERS Safety Report 17082064 (Version 2)
Quarter: 2019Q4

REPORT INFORMATION
  Report Type: Spontaneous
  Country: JP (occurrence: JP)
  Receive Date: 20191127
  Receipt Date: 20191220
  Transmission Date: 20200122
  Serious: Yes (Other)
  Sender: FDA-Public Use
  Company Number: JP-JNJFOC-20191124387

PATIENT
  Age: 79 Year
  Sex: Male

DRUGS (4)
  1. PREDNISOLONE. [Concomitant]
     Active Substance: PREDNISOLONE
     Dosage: PER ORAL MEDICINE
     Route: 048
  2. LOXOPROFEN [Concomitant]
     Active Substance: LOXOPROFEN
     Dosage: PER ORAL MEDICINE
     Route: 048
  3. DIOVAN [Concomitant]
     Active Substance: VALSARTAN
     Route: 048
  4. ERLEADA [Suspect]
     Active Substance: APALUTAMIDE
     Indication: PROSTATE CANCER
     Route: 048
     Dates: start: 20191023, end: 20191101

REACTIONS (1)
  - Hallucination [Recovered/Resolved]

NARRATIVE: CASE EVENT DATE: 20191101
